FAERS Safety Report 6590195-6 (Version None)
Quarter: 2010Q1

REPORT INFORMATION
  Report Type: 
  Country: None (occurrence: None)
  Receive Date: 20100219
  Receipt Date: 20100209
  Transmission Date: 20100710
  Serious: Yes (Death)
  Sender: FDA-Public Use
  Company Number: FI-GENZYME-FABR-1001195

PATIENT
  Sex: Male

DRUGS (2)
  1. FABRAZYME [Suspect]
     Indication: FABRY'S DISEASE
     Dosage: UNK
     Route: 042
     Dates: start: 20030101
  2. REPLAGAL [Suspect]
     Indication: FABRY'S DISEASE
     Dosage: UNK
     Dates: end: 20091211

REACTIONS (1)
  - LYMPHOMA [None]
